FAERS Safety Report 7405331-9 (Version None)
Quarter: 2011Q2

REPORT INFORMATION
  Report Type: 
  Country: None (occurrence: None)
  Receive Date: 20110411
  Receipt Date: 20110404
  Transmission Date: 20111010
  Serious: Yes (Life-Threatening, Other)
  Sender: FDA-Public Use
  Company Number: PHHY2011US26990

PATIENT
  Sex: Female

DRUGS (6)
  1. CALCIUM [Concomitant]
     Dosage: UNK
  2. CENTRUM [Concomitant]
  3. VITAMIN D [Concomitant]
     Dosage: UNK
  4. HUMIRA [Concomitant]
     Dosage: 1X2 WEEKS
  5. METHOTREXATE [Concomitant]
     Dosage: 1XWEEK
  6. RECLAST [Suspect]
     Indication: OSTEOPOROSIS
     Dosage: 5 MG
     Route: 042
     Dates: start: 20110308

REACTIONS (11)
  - ANGINA PECTORIS [None]
  - HYPERHIDROSIS [None]
  - MOVEMENT DISORDER [None]
  - ARTHRALGIA [None]
  - BACK PAIN [None]
  - WALKING AID USER [None]
  - PAIN [None]
  - FEELING ABNORMAL [None]
  - RENAL PAIN [None]
  - DEPRESSION [None]
  - INFLUENZA LIKE ILLNESS [None]
